FAERS Safety Report 7809418-8 (Version None)
Quarter: 2011Q4

REPORT INFORMATION
  Report Type: 
  Country: None (occurrence: None)
  Receive Date: 20111012
  Receipt Date: 20110929
  Transmission Date: 20120403
  Serious: Yes (Other)
  Sender: FDA-Public Use
  Company Number: BR-JNJFOC-20111001538

PATIENT
  Sex: Male
  Weight: 72 kg

DRUGS (2)
  1. LISTERINE COOLMINT [Suspect]
     Indication: DENTAL DISORDER PROPHYLAXIS
     Route: 002
     Dates: start: 20100101, end: 20100101
  2. AMYTRIL [Concomitant]
     Indication: INSOMNIA
     Route: 048
     Dates: start: 20100101

REACTIONS (2)
  - GINGIVAL DISORDER [None]
  - TOOTH FRACTURE [None]
